FAERS Safety Report 11624465 (Version 3)
Quarter: 2015Q4

REPORT INFORMATION
  Report Type: Spontaneous
  Country: DE (occurrence: DE)
  Receive Date: 20151013
  Receipt Date: 20151112
  Transmission Date: 20160304
  Serious: Yes (Hospitalization, Other)
  Sender: FDA-Public Use
  Company Number: DE-ASTELLAS-2015US036643

PATIENT
  Age: 88 Year
  Sex: Male

DRUGS (1)
  1. BETMIGA [Suspect]
     Active Substance: MIRABEGRON
     Indication: BLADDER IRRITATION
     Route: 065

REACTIONS (5)
  - Sepsis [Unknown]
  - Urine analysis abnormal [Unknown]
  - Fall [Unknown]
  - Pyrexia [Unknown]
  - Urinary tract infection staphylococcal [Unknown]

NARRATIVE: CASE EVENT DATE: 2015
